FAERS Safety Report 21231253 (Version 1)
Quarter: 2022Q3

REPORT INFORMATION
  Report Type: Spontaneous
  Country: US (occurrence: US)
  Receive Date: 20220819
  Receipt Date: 20220819
  Transmission Date: 20221027
  Serious: No
  Sender: FDA-Public Use
  Company Number: US-009507513-2208USA006176

PATIENT
  Age: 74 Year
  Sex: Female

DRUGS (2)
  1. TEMODAR [Suspect]
     Active Substance: TEMOZOLOMIDE
     Indication: Ewing^s sarcoma
     Dosage: 100 MG/M2 OVER 5 DAYS; 5 CYCLES
     Dates: start: 201903, end: 201908
  2. IRINOTECAN [Concomitant]
     Active Substance: IRINOTECAN
     Indication: Ewing^s sarcoma
     Dosage: 40 MILLIGRAM/SQ. METER OVER 5 DAYS; 5 CYCLES
     Dates: start: 201903, end: 201908

REACTIONS (1)
  - Off label use [Unknown]
